FAERS Safety Report 8334398-9 (Version None)
Quarter: 2012Q2

REPORT INFORMATION
  Report Type: 
  Country: None (occurrence: None)
  Receive Date: 20120503
  Receipt Date: 20120418
  Transmission Date: 20120825
  Serious: Yes (Other)
  Sender: FDA-Public Use
  Company Number: CN-JNJFOC-20110311432

PATIENT
  Sex: Male

DRUGS (2)
  1. SPORANOX [Suspect]
     Indication: ONYCHOMYCOSIS
     Dosage: PULSE THERAPY, 1 COURSE OF TREATMENT
     Route: 048
     Dates: start: 20110310, end: 20110324
  2. CALCIUM ANTAGONISTS [Interacting]
     Indication: HYPERTENSION
     Route: 048
     Dates: start: 20110324

REACTIONS (6)
  - BONE PAIN [None]
  - OEDEMA PERIPHERAL [None]
  - EYELID OEDEMA [None]
  - SWELLING [None]
  - DRUG INTERACTION [None]
  - HEART RATE INCREASED [None]
